FAERS Safety Report 5075786-6 (Version None)
Quarter: 2006Q3

REPORT INFORMATION
  Report Type: 
  Country: None (occurrence: None)
  Receive Date: 20060809
  Receipt Date: 20051209
  Transmission Date: 20061208
  Serious: Yes (Death, Hospitalization, Disabling, Congenital Anomaly, Other)
  Sender: FDA-Public Use
  Company Number: US-GLAXOSMITHKLINE-A0585731A

PATIENT
  Sex: Female

DRUGS (10)
  1. COMBIVIR [Suspect]
     Indication: HIV INFECTION
     Dosage: 1TAB TWICE PER DAY
     Dates: start: 20050214, end: 20050906
  2. TEGRETOL [Suspect]
  3. DEPAKOTE [Suspect]
  4. VIRACEPT [Concomitant]
     Indication: HIV INFECTION
     Dosage: 2TAB PER DAY
     Dates: start: 20050214, end: 20050526
  5. KALETRA [Concomitant]
     Indication: HIV INFECTION
     Dates: start: 20050526, end: 20050906
  6. FOLATE [Concomitant]
  7. METRONIDAZOLE [Concomitant]
  8. BACTRIM DS [Concomitant]
     Indication: HIV INFECTION
     Dates: start: 20050214, end: 20050906
  9. FLUCONAZOLE [Concomitant]
     Dosage: 100MG WEEKLY
     Dates: start: 20050214, end: 20050407
  10. AZITHROMYCIN [Concomitant]
     Dosage: 1200MG WEEKLY
     Dates: start: 20050214, end: 20050407

REACTIONS (10)
  - ARNOLD-CHIARI MALFORMATION [None]
  - ATRIAL SEPTAL DEFECT [None]
  - CARDIAC DISORDER [None]
  - DRUG EXPOSURE DURING PREGNANCY [None]
  - FEEDING DISORDER OF INFANCY OR EARLY CHILDHOOD [None]
  - MENINGOMYELOCELE [None]
  - PULMONARY VALVE STENOSIS [None]
  - RESPIRATORY DISTRESS [None]
  - SPINA BIFIDA [None]
  - VENTRICULAR SEPTAL DEFECT [None]
